FAERS Safety Report 5685328-X (Version None)
Quarter: 2008Q1

REPORT INFORMATION
  Report Type: 
  Country: None (occurrence: None)
  Receive Date: 20080328
  Receipt Date: 20080317
  Transmission Date: 20080703
  Serious: Yes (Other)
  Sender: FDA-Public Use
  Company Number: AU-PFIZER INC-2008024680

PATIENT
  Age: 69 Year
  Sex: Female
  Weight: 68 kg

DRUGS (11)
  1. CABERGOLINE [Suspect]
     Indication: RESTLESS LEGS SYNDROME
     Dosage: DAILY DOSE:2MG
  2. TRAMADOL HCL [Interacting]
     Route: 042
  3. RAMIPRIL [Concomitant]
     Indication: HYPERTENSION
     Dosage: DAILY DOSE:10MG
  4. PREGABALIN [Concomitant]
     Indication: RESTLESS LEGS SYNDROME
  5. PROPOFOL [Concomitant]
  6. FENTANYL [Concomitant]
  7. ROCURONIUM BROMIDE [Concomitant]
  8. SEVOFLURANE [Concomitant]
  9. CEFAZOLIN [Concomitant]
  10. ACETAMINOPHEN [Concomitant]
  11. PARECOXIB SODIUM [Concomitant]

REACTIONS (2)
  - DRUG INTERACTION [None]
  - HYPERTENSION [None]
